FAERS Safety Report 10535770 (Version 2)
Quarter: 2014Q4

REPORT INFORMATION
  Report Type: Spontaneous
  Country: US (occurrence: US)
  Receive Date: 20141022
  Receipt Date: 20141022
  Transmission Date: 20150529
  Serious: No
  Sender: FDA-Public Use
  Company Number: US-RECKITT BENCKISER PHARMACEUTICAL, INC-RB-60977-2013

PATIENT

DRUGS (9)
  1. BUPRENORPHINE PATCH [Suspect]
     Active Substance: BUPRENORPHINE
     Indication: DEPRESSION
     Dosage: DOSING DETAILS UNKNOWN; CUTTING INTO SEVERAL PIECES
     Route: 062
     Dates: start: 201306, end: 201308
  2. SUBOXONE [Suspect]
     Active Substance: BUPRENORPHINE HYDROCHLORIDE\NALOXONE HYDROCHLORIDE
     Indication: DEPRESSION
     Dosage: SUBOXONE FILM;HE CUTS FILM INTO 48 PIECES AND TAKES 1 PIECE, 3 TIMES PER DAY
     Route: 060
     Dates: start: 2011, end: 201306
  3. SUBOXONE [Suspect]
     Active Substance: BUPRENORPHINE HYDROCHLORIDE\NALOXONE HYDROCHLORIDE
     Indication: DRUG DEPENDENCE
     Dosage: SUBOXONE FILM; CUTTING INTO 48 PIECES AND TAKING 1 TO 2 PIECE A DAY
     Route: 060
     Dates: start: 201404
  4. VITAMIN B [Concomitant]
     Active Substance: VITAMIN B
     Indication: NUTRITIONAL SUPPLEMENTATION
     Dosage: DOSING DETAILS UNKNOWN
     Route: 048
  5. ASPIRIN. [Concomitant]
     Active Substance: ASPIRIN
     Indication: PROPHYLAXIS
     Route: 048
  6. VITAMIN D [Concomitant]
     Active Substance: CHOLECALCIFEROL
     Indication: NUTRITIONAL SUPPLEMENTATION
     Dosage: DOSING DETAILS UNKNOWN
     Route: 048
  7. SYNTHROID [Concomitant]
     Active Substance: LEVOTHYROXINE SODIUM
     Indication: PARATHYROID TUMOUR BENIGN
     Route: 048
     Dates: start: 1980
  8. SUBOXONE [Suspect]
     Active Substance: BUPRENORPHINE HYDROCHLORIDE\NALOXONE HYDROCHLORIDE
     Indication: PAIN
     Dosage: SUBOXONE FILM; CUTTING INTO 48 PIECES AND TAKING 3 PIECES A DAY; NOT SURE IF CONTINUED EXPIRED FILM
     Route: 060
     Dates: start: 201308, end: 201403
  9. ALCOHOL. [Suspect]
     Active Substance: ALCOHOL
     Indication: PRODUCT USED FOR UNKNOWN INDICATION
     Dosage: 1 A DAY
     Route: 048

REACTIONS (7)
  - Expired product administered [Not Recovered/Not Resolved]
  - No adverse event [Not Recovered/Not Resolved]
  - Wrong technique in drug usage process [Not Recovered/Not Resolved]
  - Oedema peripheral [Not Recovered/Not Resolved]
  - Headache [Recovered/Resolved]
  - Off label use [Not Recovered/Not Resolved]
  - Alcohol abuse [Not Recovered/Not Resolved]

NARRATIVE: CASE EVENT DATE: 2011
